FAERS Safety Report 4700920-4 (Version None)
Quarter: 2005Q2

REPORT INFORMATION
  Report Type: 
  Country: None (occurrence: None)
  Receive Date: 20050624
  Receipt Date: 20050610
  Transmission Date: 20051028
  Serious: Yes (Death)
  Sender: FDA-Public Use
  Company Number: 215247

PATIENT
  Age: 55 Year
  Sex: Female

DRUGS (3)
  1. AVASTIN [Suspect]
     Indication: NON-SMALL CELL LUNG CANCER
     Dosage: 15 MG/KG
     Dates: start: 20050413, end: 20050413
  2. TARCEVA [Suspect]
     Indication: NON-SMALL CELL LUNG CANCER
     Dates: start: 20050101, end: 20050301
  3. WARFARIN SODIUM [Concomitant]

REACTIONS (10)
  - DIARRHOEA [None]
  - DISEASE RECURRENCE [None]
  - HAEMORRHAGE [None]
  - JUGULAR VEIN THROMBOSIS [None]
  - LUNG CONSOLIDATION [None]
  - MASS [None]
  - METASTASES TO LIVER [None]
  - NON-SMALL CELL LUNG CANCER [None]
  - PNEUMONIA [None]
  - PULMONARY OEDEMA [None]
